FAERS Safety Report 8268659 (Version 2)
Quarter: 2012Q4

REPORT INFORMATION
  Report Type: 
  Country: US (occurrence: US)
  Receive Date: 20111130
  Receipt Date: 20120924
  Transmission Date: 20130627
  Serious: Yes (Death, Congenital Anomaly)
  Sender: FDA-Public Use
  Company Number: US-PFIZER INC-2011290321

PATIENT
  Sex: Male
  Weight: 2.72 kg

DRUGS (2)
  1. ZOLOFT [Suspect]
     Indication: DEPRESSION
     Dosage: 100 mg, daily
     Route: 064
     Dates: start: 200301, end: 200301
  2. HYDROCODONE BITARTRATE/ ACETAMINOPHEN [Concomitant]
     Indication: PAIN
     Dosage: 5/500 mg, every 6 hour
     Route: 064

REACTIONS (5)
  - Maternal exposure timing unspecified [Fatal]
  - Congenital cystic lung [Fatal]
  - Congenital coronary artery malformation [Fatal]
  - Thymus disorder [Fatal]
  - Petechiae [Fatal]
